FAERS Safety Report 6436430-6 (Version None)
Quarter: 2009Q4

REPORT INFORMATION
  Report Type: 
  Country: None (occurrence: None)
  Receive Date: 20091111
  Receipt Date: 20091028
  Transmission Date: 20100525
  Serious: Yes (Other)
  Sender: FDA-Public Use
  Company Number: NL-BRISTOL-MYERS SQUIBB COMPANY-14851562

PATIENT
  Sex: Male

DRUGS (1)
  1. DIDANOSINE [Suspect]
     Dosage: TREATED WITH FOR 10 YRS

REACTIONS (2)
  - PORTAL HYPERTENSION [None]
  - VARICOSE VEIN RUPTURED [None]
